FAERS Safety Report 24619166 (Version 2)
Quarter: 2024Q4

REPORT INFORMATION
  Report Type: Spontaneous
  Country: US (occurrence: US)
  Receive Date: 20241114
  Receipt Date: 20241129
  Transmission Date: 20250115
  Serious: Yes (Life-Threatening, Hospitalization)
  Sender: TEVA
  Company Number: US-TEVA-VS-3262419

PATIENT
  Age: 16 Year
  Sex: Male

DRUGS (1)
  1. AMOXICILLIN [Suspect]
     Active Substance: AMOXICILLIN
     Indication: Antibiotic prophylaxis
     Route: 065

REACTIONS (10)
  - Anaphylactic reaction [Recovering/Resolving]
  - Chest discomfort [Recovering/Resolving]
  - Peripheral swelling [Recovering/Resolving]
  - Urticaria [Recovering/Resolving]
  - Wheezing [Recovering/Resolving]
  - Hypoxia [Recovering/Resolving]
  - Dyspnoea [Recovering/Resolving]
  - Hypotension [Recovering/Resolving]
  - Flushing [Recovering/Resolving]
  - Diarrhoea [Recovering/Resolving]
